FAERS Safety Report 18664662 (Version 2)
Quarter: 2020Q4

REPORT INFORMATION
  Report Type: Spontaneous
  Country: DE (occurrence: DE)
  Receive Date: 20201225
  Receipt Date: 20201229
  Transmission Date: 20210114
  Serious: Yes (Other)
  Sender: FDA-Public Use
  Company Number: DE-SA-2020SA361460

PATIENT

DRUGS (3)
  1. IBRUTINIB [Concomitant]
     Active Substance: IBRUTINIB
     Indication: LEUKAEMIA CUTIS
  2. VENETOCLAX. [Concomitant]
     Active Substance: VENETOCLAX
     Indication: LEUKAEMIA CUTIS
  3. ALEMTUZUMAB [Suspect]
     Active Substance: ALEMTUZUMAB
     Indication: T-CELL PROLYMPHOCYTIC LEUKAEMIA
     Dosage: UNK

REACTIONS (5)
  - Cytopenia [Unknown]
  - Acquired gene mutation [Unknown]
  - Coombs negative haemolytic anaemia [Recovered/Resolved]
  - Paroxysmal nocturnal haemoglobinuria [Recovering/Resolving]
  - Thrombocytopenia [Unknown]
